FAERS Safety Report 6683724-5 (Version None)
Quarter: 2010Q2

REPORT INFORMATION
  Report Type: 
  Country: None (occurrence: None)
  Receive Date: 20100416
  Receipt Date: 20100407
  Transmission Date: 20101027
  Serious: No
  Sender: FDA-Public Use
  Company Number: US-BIOGENIDEC-2010BI012000

PATIENT
  Age: 47 Year
  Sex: Male

DRUGS (3)
  1. TYSABRI [Suspect]
     Indication: MULTIPLE SCLEROSIS
     Route: 042
     Dates: start: 20050128, end: 20050228
  2. TYSABRI [Suspect]
     Route: 042
     Dates: start: 20060818, end: 20070920
  3. TYSABRI [Suspect]
     Route: 042
     Dates: start: 20100114

REACTIONS (5)
  - COLITIS [None]
  - CYSTITIS [None]
  - DRUG INEFFECTIVE [None]
  - EAR INFECTION [None]
  - HYPERSENSITIVITY [None]
